FAERS Safety Report 8996208 (Version 1)
Quarter: 2013Q1

REPORT INFORMATION
  Report Type: Spontaneous
  Country: FR (occurrence: FR)
  Receive Date: 20130103
  Receipt Date: 20130103
  Transmission Date: 20140127
  Serious: Yes (Other)
  Sender: FDA-Public Use
  Company Number: FR-B.I. PHARMACEUTICALS,INC./RIDGEFIELD-2012-FF-02078FF

PATIENT
  Sex: Female

DRUGS (2)
  1. SIFROL [Suspect]
     Indication: PARKINSON^S DISEASE
     Dosage: 2.1 MG
     Route: 048
     Dates: start: 201202
  2. MODOPAR [Suspect]
     Indication: PARKINSON^S DISEASE
     Route: 048
     Dates: start: 201108

REACTIONS (3)
  - Impulse-control disorder [Not Recovered/Not Resolved]
  - Compulsive shopping [Not Recovered/Not Resolved]
  - Stereotypy [Not Recovered/Not Resolved]
